FAERS Safety Report 22305589 (Version 8)
Quarter: 2024Q1

REPORT INFORMATION
  Report Type: Spontaneous
  Country: US (occurrence: US)
  Receive Date: 20230510
  Receipt Date: 20240105
  Transmission Date: 20240410
  Serious: No
  Sender: FDA-Public Use
  Company Number: US-Blueprint Medicines Corporation-1116

PATIENT
  Age: 35 Year
  Sex: Male

DRUGS (4)
  1. AYVAKIT [Suspect]
     Active Substance: AVAPRITINIB
     Indication: Gastrointestinal stromal tumour
     Route: 065
     Dates: start: 20230408
  2. AYVAKIT [Suspect]
     Active Substance: AVAPRITINIB
     Route: 048
     Dates: start: 202202
  3. AYVAKIT [Suspect]
     Active Substance: AVAPRITINIB
     Route: 065
     Dates: start: 20230408
  4. AYVAKIT [Suspect]
     Active Substance: AVAPRITINIB
     Route: 065
     Dates: start: 20230408

REACTIONS (27)
  - Renal function test abnormal [Unknown]
  - Unevaluable event [Unknown]
  - Dysphemia [Unknown]
  - Gastrointestinal disorder [Unknown]
  - Brain fog [Unknown]
  - Vision blurred [Recovered/Resolved]
  - Muscular weakness [Unknown]
  - Hyperaesthesia [Unknown]
  - Visual impairment [Unknown]
  - Skin atrophy [Unknown]
  - Hypovitaminosis [Unknown]
  - Blood iron decreased [Unknown]
  - Urticaria [Unknown]
  - Pain in extremity [Unknown]
  - Weight decreased [Unknown]
  - Hair colour changes [Unknown]
  - Fatigue [Not Recovered/Not Resolved]
  - Decreased appetite [Unknown]
  - Cognitive disorder [Unknown]
  - Intentional dose omission [Unknown]
  - H1N1 influenza [Unknown]
  - Nasopharyngitis [Unknown]
  - Rhinorrhoea [Unknown]
  - Epistaxis [Unknown]
  - Skin fissures [Unknown]
  - Headache [Unknown]
  - Feeling cold [Unknown]

NARRATIVE: CASE EVENT DATE: 20220201
